FAERS Safety Report 13613161 (Version 2)
Quarter: 2017Q3

REPORT INFORMATION
  Report Type: Spontaneous
  Country: US (occurrence: US)
  Receive Date: 20170605
  Receipt Date: 20170707
  Transmission Date: 20171127
  Serious: No
  Sender: FDA-Public Use
  Company Number: US-SHIRE-US201710483

PATIENT
  Age: 8 Year
  Sex: Male

DRUGS (1)
  1. ADDERALL XR [Suspect]
     Active Substance: AMPHETAMINE ASPARTATE\AMPHETAMINE SULFATE\DEXTROAMPHETAMINE SACCHARATE\DEXTROAMPHETAMINE SULFATE
     Indication: ATTENTION DEFICIT/HYPERACTIVITY DISORDER
     Dosage: UNK, UNKNOWN
     Route: 048

REACTIONS (4)
  - Educational problem [Unknown]
  - Drug effect decreased [Unknown]
  - Drug tolerance [Unknown]
  - Drug effect incomplete [Unknown]
